FAERS Safety Report 21687965 (Version 1)
Quarter: 2022Q4

REPORT INFORMATION
  Report Type: Spontaneous
  Country: US (occurrence: US)
  Receive Date: 20221206
  Receipt Date: 20221206
  Transmission Date: 20230113
  Serious: Yes (Hospitalization, Other)
  Sender: FDA-Public Use
  Company Number: US-APOTEX-2022AP016285

PATIENT
  Age: 29 Year
  Sex: Female

DRUGS (3)
  1. TRAMADOL [Suspect]
     Active Substance: TRAMADOL
     Indication: Product used for unknown indication
     Dosage: UNK
     Route: 065
  2. FENTANYL [Suspect]
     Active Substance: FENTANYL
     Indication: Product used for unknown indication
     Dosage: UNK, QD 25 BAGS OF INTRAVENOUS HEROIN/FENTANYL DAILY
     Route: 042
  3. HEROIN [Suspect]
     Active Substance: DIAMORPHINE
     Indication: Product used for unknown indication
     Dosage: UNK, QD, 25 BAGS OF INTRAVENOUS HEROIN/FENTANYL DAILY
     Route: 042

REACTIONS (3)
  - Drug use disorder [Unknown]
  - Drug withdrawal syndrome [Recovering/Resolving]
  - Adulterated product [Unknown]
